FAERS Safety Report 4709050-9 (Version None)
Quarter: 2005Q3

REPORT INFORMATION
  Report Type: 
  Country: None (occurrence: None)
  Receive Date: 20050707
  Receipt Date: 20050630
  Transmission Date: 20060218
  Serious: Yes (Other)
  Sender: FDA-Public Use
  Company Number: GXKR2005DE01291

PATIENT
  Sex: Female

DRUGS (1)
  1. BISOPROLOL SANDOZ (NGX) (BISOPROLOL) FILM-COATED TABLET [Suspect]
     Indication: CARDIOMYOPATHY
     Dosage: 1/2 TABLET (2.5 MG), ORAL
     Route: 048

REACTIONS (22)
  - ABDOMINAL PAIN [None]
  - ALOPECIA [None]
  - ARTHROPATHY [None]
  - BLOOD PRESSURE DECREASED [None]
  - CARDIAC FAILURE [None]
  - DIARRHOEA [None]
  - DYSPNOEA [None]
  - FALL [None]
  - FATIGUE [None]
  - GASTROINTESTINAL DISORDER [None]
  - HEPATIC ENZYME INCREASED [None]
  - MUSCLE SPASMS [None]
  - MUSCULAR WEAKNESS [None]
  - NAUSEA [None]
  - OEDEMA PERIPHERAL [None]
  - PAIN IN EXTREMITY [None]
  - PERIPHERAL COLDNESS [None]
  - SYNCOPE [None]
  - TACHYCARDIA [None]
  - TREMOR [None]
  - VASOSPASM [None]
  - VERTIGO [None]
